FAERS Safety Report 5239363-6 (Version None)
Quarter: 2007Q1

REPORT INFORMATION
  Report Type: 
  Country: None (occurrence: None)
  Receive Date: 20070214
  Receipt Date: 20070214
  Transmission Date: 20070707
  Serious: Yes (Life-Threatening, Hospitalization)
  Sender: FDA-Public Use
  Company Number: None

PATIENT
  Age: 80 Year
  Sex: Male
  Weight: 115.6672 kg

DRUGS (2)
  1. BACTRIM DS [Suspect]
     Indication: URINARY TRACT INFECTION
     Dates: start: 20061023, end: 20061101
  2. KCL TAB [Suspect]
     Indication: MINERAL SUPPLEMENTATION
     Dates: start: 20060427, end: 20061101

REACTIONS (3)
  - DIALYSIS [None]
  - HYPERKALAEMIA [None]
  - RENAL FAILURE [None]
